FAERS Safety Report 17661693 (Version 1)
Quarter: 2020Q2

REPORT INFORMATION
  Report Type: Report from Study
  Country: None (occurrence: US)
  Receive Date: 20200413
  Receipt Date: 20200413
  Transmission Date: 20200713
  Serious: Yes (Other)
  Sender: FDA-Public Use
  Company Number: US-ORIT LABORATORIES LLC-2082725

PATIENT
  Age: 17 Year
  Sex: Female

DRUGS (1)
  1. FENOFIBRATE. [Suspect]
     Active Substance: FENOFIBRATE
     Indication: HYPERTRIGLYCERIDAEMIA
     Route: 048
     Dates: start: 20200325

REACTIONS (3)
  - Autoimmune hepatitis [Unknown]
  - Liver function test abnormal [Unknown]
  - Lupus pancreatitis [Unknown]

NARRATIVE: CASE EVENT DATE: 20200325
